FAERS Safety Report 10231447 (Version 1)
Quarter: 2014Q2

REPORT INFORMATION
  Report Type: Spontaneous
  Country: US (occurrence: US)
  Receive Date: 20140611
  Receipt Date: 20140611
  Transmission Date: 20141212
  Serious: Yes (Other)
  Sender: FDA-Public Use
  Company Number: US-BAXTER-2014BAX030275

PATIENT
  Age: 29 Year
  Sex: Female

DRUGS (2)
  1. GAMMAGARD LIQUID [Suspect]
     Indication: STIFF PERSON SYNDROME
     Route: 042
  2. GAMMAGARD LIQUID [Suspect]
     Indication: CEREBELLAR ATAXIA

REACTIONS (1)
  - Drug ineffective [Not Recovered/Not Resolved]
